FAERS Safety Report 9921446 (Version 1)
Quarter: 2014Q1

REPORT INFORMATION
  Report Type: Spontaneous
  Country: US (occurrence: None)
  Receive Date: 20140221
  Receipt Date: 20140221
  Transmission Date: 20141002
  Serious: No
  Sender: FDA-Public Use
  Company Number: None

PATIENT
  Age: 51 Year
  Sex: Female

DRUGS (1)
  1. HUMIRA [Suspect]
     Indication: CROHN^S DISEASE
     Dosage: Q2W
     Dates: start: 20140103, end: 20140126

REACTIONS (4)
  - Pyrexia [None]
  - Myalgia [None]
  - Night sweats [None]
  - No therapeutic response [None]
